FAERS Safety Report 15640851 (Version 3)
Quarter: 2018Q4

REPORT INFORMATION
  Report Type: Spontaneous
  Country: US (occurrence: US)
  Receive Date: 20181120
  Receipt Date: 20181206
  Transmission Date: 20190205
  Serious: No
  Sender: FDA-Public Use
  Company Number: US-009507513-1811USA003134

PATIENT
  Sex: Female
  Weight: 58.05 kg

DRUGS (1)
  1. GANIRELIX ACETATE INJECTION [Suspect]
     Active Substance: GANIRELIX ACETATE
     Indication: ASSISTED FERTILISATION
     Dosage: 250 MICROGRAM /0.5 MILLILITERS, QD
     Route: 058
     Dates: start: 201811

REACTIONS (3)
  - Occupational exposure to product [Unknown]
  - Product quality issue [Unknown]
  - Product leakage [Unknown]

NARRATIVE: CASE EVENT DATE: 2018
